FAERS Safety Report 21118984 (Version 1)
Quarter: 2022Q3

REPORT INFORMATION
  Report Type: Spontaneous
  Country: US (occurrence: None)
  Receive Date: 20220721
  Receipt Date: 20220721
  Transmission Date: 20221027
  Serious: Yes (Hospitalization)
  Sender: FDA-Public Use
  Company Number: None

PATIENT
  Age: 55 Year
  Sex: Male

DRUGS (1)
  1. SUGAMMADEX [Suspect]
     Active Substance: SUGAMMADEX
     Indication: Surgery
     Dosage: 400 MG ONCE IV?
     Route: 042
     Dates: start: 202102, end: 202202

REACTIONS (8)
  - Cardiac arrest [None]
  - Bradycardia [None]
  - Electrocardiogram QRS complex prolonged [None]
  - Electrocardiogram ST segment depression [None]
  - Anaphylactic reaction [None]
  - Sepsis [None]
  - White blood cell count decreased [None]
  - Hypersensitivity [None]

NARRATIVE: CASE EVENT DATE: 20210218
